FAERS Safety Report 6403017-0 (Version None)
Quarter: 2009Q4

REPORT INFORMATION
  Report Type: 
  Country: None (occurrence: None)
  Receive Date: 20091014
  Receipt Date: 20091014
  Transmission Date: 20100525
  Serious: Yes (Life-Threatening)
  Sender: FDA-Public Use
  Company Number: None

PATIENT
  Sex: Female
  Weight: 63.5036 kg

DRUGS (1)
  1. OXYTROL [Suspect]
     Indication: INCONTINENCE
     Dosage: 3.9MG/DAILY TWICE WEEKLY PATCH
     Dates: start: 20090401, end: 20090501

REACTIONS (2)
  - ANGINA PECTORIS [None]
  - CARDIAC DISORDER [None]
